FAERS Safety Report 19922921 (Version 1)
Quarter: 2021Q4

REPORT INFORMATION
  Report Type: Other
  Country: CN (occurrence: CN)
  Receive Date: 20211006
  Receipt Date: 20211006
  Transmission Date: 20220304
  Serious: Yes (Other)
  Sender: FDA-Public Use
  Company Number: CN-ROCHE-2925742

PATIENT

DRUGS (2)
  1. CAPECITABINE [Suspect]
     Active Substance: CAPECITABINE
     Indication: Gastric cancer
     Dosage: DAY1-14, EVERY 3 WEEKS AS A CYCLE OF CHEMOTHERAPY, CONTINUOUS TREATMENT OF 2 CYCLES OF CHEMOTHERAPY
     Route: 048
  2. OXALIPLATIN [Suspect]
     Active Substance: OXALIPLATIN
     Indication: Gastric cancer
     Dosage: DAY1, EVERY 3 WEEKS AS A CYCLE OF CHEMOTHERAPY, CONTINUOUS TREATMENT OF 2 CYCLES OF CHEMOTHERAPY
     Route: 041

REACTIONS (1)
  - Renal impairment [Unknown]
